FAERS Safety Report 8973103 (Version 1)
Quarter: 2012Q4

REPORT INFORMATION
  Report Type: 
  Country: US (occurrence: US)
  Receive Date: 20121218
  Receipt Date: 20121218
  Transmission Date: 20130627
  Serious: No
  Sender: FDA-Public Use
  Company Number: US-BRISTOL-MYERS SQUIBB COMPANY-16999401

PATIENT
  Age: 47 Year
  Sex: Male
  Weight: 71.65 kg

DRUGS (3)
  1. ABILIFY TABS [Suspect]
     Indication: DEPRESSION
     Dosage: first two weeks samples
     Dates: start: 2012
  2. ABILIFY TABS [Suspect]
     Indication: ANXIETY
     Dosage: first two weeks samples
     Dates: start: 2012
  3. WELLBUTRIN [Concomitant]
     Indication: DEPRESSION

REACTIONS (1)
  - Depression [Unknown]
